FAERS Safety Report 7552557-X (Version None)
Quarter: 2011Q2

REPORT INFORMATION
  Report Type: 
  Country: None (occurrence: None)
  Receive Date: 20110616
  Receipt Date: 20110609
  Transmission Date: 20111010
  Serious: Yes (Death)
  Sender: FDA-Public Use
  Company Number: US-CELGENEUS-163-21880-11051091

PATIENT
  Sex: Male

DRUGS (7)
  1. WARFARIN SODIUM [Concomitant]
     Route: 065
  2. REVLIMID [Suspect]
     Indication: MULTIPLE MYELOMA
     Dosage: .7143 MILLIGRAM
     Route: 048
     Dates: start: 20110218, end: 20110427
  3. HYDROCODONE [Concomitant]
     Route: 065
  4. LOSARTAN POTASSIUM [Concomitant]
     Route: 065
  5. PREDNISONE [Concomitant]
     Route: 065
  6. ZETRIL [Concomitant]
     Route: 065
  7. COLCHICINE [Concomitant]
     Route: 065

REACTIONS (1)
  - CORONARY ARTERY DISEASE [None]
